FAERS Safety Report 14006265 (Version 2)
Quarter: 2017Q4

REPORT INFORMATION
  Report Type: Spontaneous
  Country: US (occurrence: US)
  Receive Date: 20170924
  Receipt Date: 20171003
  Transmission Date: 20180321
  Serious: Yes (Hospitalization, Other)
  Sender: FDA-Public Use
  Company Number: US-AMGEN-USASP2017141935

PATIENT
  Age: 75 Year
  Sex: Female

DRUGS (6)
  1. ENBREL [Suspect]
     Active Substance: ETANERCEPT
     Indication: ARTHRITIS
     Dosage: 50 MG, QWK
     Route: 065
  2. HUMIRA [Suspect]
     Active Substance: ADALIMUMAB
     Indication: PRODUCT USED FOR UNKNOWN INDICATION
     Dosage: UNK
     Route: 065
  3. ENBREL [Suspect]
     Active Substance: ETANERCEPT
     Indication: PULMONARY FIBROSIS
     Dosage: 50 MG, QWK
     Route: 065
     Dates: start: 201709
  4. ENBREL [Suspect]
     Active Substance: ETANERCEPT
     Indication: MIXED CONNECTIVE TISSUE DISEASE
     Dosage: 50 MG, QWK
     Route: 065
  5. ENBREL [Suspect]
     Active Substance: ETANERCEPT
     Indication: CROHN^S DISEASE
     Dosage: 50 MG, QWK
     Route: 065
     Dates: end: 20170901
  6. ENBREL [Suspect]
     Active Substance: ETANERCEPT
     Indication: PULMONARY HYPERTENSION

REACTIONS (9)
  - Infection [Unknown]
  - Off label use [Unknown]
  - Bile duct stone [Unknown]
  - White blood cell count abnormal [Unknown]
  - Abdominal pain upper [Unknown]
  - Cardiac failure [Unknown]
  - Psoriasis [Unknown]
  - Hepatic enzyme abnormal [Unknown]
  - Unevaluable event [Unknown]

NARRATIVE: CASE EVENT DATE: 201609
